FAERS Safety Report 6737521-2 (Version None)
Quarter: 2010Q2

REPORT INFORMATION
  Report Type: 
  Country: None (occurrence: None)
  Receive Date: 20100524
  Receipt Date: 20100524
  Transmission Date: 20101027
  Serious: Yes (Other)
  Sender: FDA-Public Use
  Company Number: None

PATIENT
  Age: 11 Year
  Sex: Female
  Weight: 29.4838 kg

DRUGS (1)
  1. CHILDRENS TYLONEOL SUSP. 80 MG MC NEIL [Suspect]
     Indication: PYREXIA
     Dates: start: 20091110, end: 20100429

REACTIONS (1)
  - NO ADVERSE EVENT [None]
